FAERS Safety Report 6896837-X (Version None)
Quarter: 2010Q3

REPORT INFORMATION
  Report Type: 
  Country: None (occurrence: None)
  Receive Date: 20100802
  Receipt Date: 20070226
  Transmission Date: 20110219
  Serious: No
  Sender: FDA-Public Use
  Company Number: US-PFIZER INC-2007015777

PATIENT
  Sex: Male
  Weight: 106.6 kg

DRUGS (5)
  1. LYRICA [Suspect]
     Indication: DIABETIC NEUROPATHY
  2. LIPITOR [Concomitant]
  3. RANTAC [Concomitant]
  4. MOTRIN [Concomitant]
  5. TRIOBE [Concomitant]

REACTIONS (1)
  - VISION BLURRED [None]
